FAERS Safety Report 8318278-0 (Version None)
Quarter: 2012Q2

REPORT INFORMATION
  Report Type: 
  Country: None (occurrence: None)
  Receive Date: 20120427
  Receipt Date: 20101105
  Transmission Date: 20120825
  Serious: Yes (Hospitalization)
  Sender: FDA-Public Use
  Company Number: GB-CELGENEUS-167-21880-10110905

PATIENT
  Age: 70 Year
  Sex: Female

DRUGS (3)
  1. DEXAMETHASONE [Suspect]
     Route: 048
     Dates: start: 20100924
  2. CYCLOPHOSPHAMIDE [Suspect]
     Route: 048
     Dates: start: 20100924
  3. REVLIMID [Suspect]
     Route: 048
     Dates: start: 20100924, end: 20101103

REACTIONS (3)
  - HYPERKALAEMIA [None]
  - NEUTROPENIA [None]
  - ANAEMIA [None]
